FAERS Safety Report 4651738-2 (Version None)
Quarter: 2005Q2

REPORT INFORMATION
  Report Type: 
  Country: None (occurrence: None)
  Receive Date: 20050404
  Receipt Date: 20041119
  Transmission Date: 20051028
  Serious: No
  Sender: FDA-Public Use
  Company Number: USA041184291

PATIENT
  Age: 55 Year
  Sex: Male

DRUGS (6)
  1. CYMBALTA [Suspect]
     Dosage: 60 MG
     Dates: start: 20040101
  2. ALLOPURINOL [Concomitant]
  3. ZYRTEC [Concomitant]
  4. OMEPRAZOLE [Concomitant]
  5. CELEBREX [Concomitant]
  6. VIOXX [Concomitant]

REACTIONS (6)
  - ANXIETY [None]
  - DIZZINESS [None]
  - FEELING ABNORMAL [None]
  - MYDRIASIS [None]
  - NAUSEA [None]
  - UNEVALUABLE EVENT [None]
